FAERS Safety Report 9563746 (Version 1)
Quarter: 2013Q3

REPORT INFORMATION
  Report Type: Spontaneous
  Country: DE (occurrence: None)
  Receive Date: 20130926
  Receipt Date: 20130926
  Transmission Date: 20140515
  Serious: Yes (Death)
  Sender: FDA-Public Use
  Company Number: GER/GER/13/0034633

PATIENT
  Age: 85 Year
  Sex: Female

DRUGS (8)
  1. RAMIPRIL (RAMIPRIL) [Suspect]
     Indication: PRODUCT USED FOR UNKNOWN INDICATION
  2. AFINITOR [Suspect]
     Indication: METASTASES TO LIVER
     Dates: start: 201305
  3. METFORMIN (METFORMIN) [Concomitant]
  4. DIGITOXIN (DIGITOXIN) [Concomitant]
  5. ATELEC (CILNIDIPINE) [Concomitant]
  6. GLIMEPIRIDE (GLIMEPIRIDE) [Concomitant]
  7. EXEMESTANE (EXEMESTANE) [Concomitant]
  8. BELOC-ZOK MITE (METOPROLOL SUCCINATE) [Concomitant]

REACTIONS (5)
  - Angioedema [None]
  - Swollen tongue [None]
  - Multi-organ failure [None]
  - Septic shock [None]
  - Pneumonia [None]
